FAERS Safety Report 6253186-0 (Version None)
Quarter: 2009Q3

REPORT INFORMATION
  Report Type: 
  Country: None (occurrence: None)
  Receive Date: 20090701
  Receipt Date: 20090625
  Transmission Date: 20100115
  Serious: Yes (Death)
  Sender: FDA-Public Use
  Company Number: NZ-MERCK-0905NZL00008

PATIENT
  Age: 50 Year
  Sex: Female

DRUGS (1)
  1. CANCIDAS [Suspect]
     Indication: ASPERGILLOSIS
     Route: 041
     Dates: start: 20090518, end: 20090604

REACTIONS (3)
  - DEATH [None]
  - INCORRECT DRUG DOSAGE FORM ADMINISTERED [None]
  - WRONG TECHNIQUE IN DRUG USAGE PROCESS [None]
